FAERS Safety Report 26052887 (Version 1)
Quarter: 2025Q4

REPORT INFORMATION
  Report Type: Spontaneous
  Country: CN (occurrence: CN)
  Receive Date: 20251117
  Receipt Date: 20251117
  Transmission Date: 20260118
  Serious: Yes (Hospitalization)
  Sender: DAIICHI
  Company Number: CN-DSJP-DS-2025-176371-CN

PATIENT
  Age: 46 Year
  Sex: Female
  Weight: 78.2 kg

DRUGS (4)
  1. EDOXABAN [Interacting]
     Active Substance: EDOXABAN
     Indication: Atrial fibrillation
     Dosage: 60 MG, QD
     Route: 065
  2. EDOXABAN [Interacting]
     Active Substance: EDOXABAN
     Indication: Anticoagulant therapy
     Dosage: 30 MG, QD
     Route: 065
  3. AMIODARONE HYDROCHLORIDE [Interacting]
     Active Substance: AMIODARONE HYDROCHLORIDE
     Indication: Arrhythmia supraventricular
     Dosage: 0.1 G, QD
     Route: 065
  4. DIENOGEST [Concomitant]
     Active Substance: DIENOGEST
     Indication: Adenomyosis
     Dosage: 2 MG, QD
     Route: 065

REACTIONS (2)
  - Ileal ulcer [Unknown]
  - Drug interaction [Unknown]
